FAERS Safety Report 5537728-6 (Version None)
Quarter: 2007Q4

REPORT INFORMATION
  Report Type: 
  Country: None (occurrence: None)
  Receive Date: 20071207
  Receipt Date: 20071203
  Transmission Date: 20080405
  Serious: Yes (Hospitalization)
  Sender: FDA-Public Use
  Company Number: US-SANOFI-SYNTHELABO-F01200701588

PATIENT
  Age: 79 Year
  Sex: Male

DRUGS (14)
  1. CENTRUM [Concomitant]
  2. COLACE [Concomitant]
  3. NOVOLOG [Concomitant]
  4. PAXIL [Concomitant]
  5. FLEXERIL [Concomitant]
  6. LIPITOR [Concomitant]
  7. ACTOS [Concomitant]
  8. MORPHINE SULFATE CONTIN [Concomitant]
  9. MORPHINE SULFATE [Concomitant]
  10. LEUCOVORIN CALCIUM [Suspect]
     Route: 042
     Dates: start: 20071029, end: 20071029
  11. CELEBREX [Concomitant]
  12. FLUOROURACIL [Suspect]
     Dosage: 400 MG/M2 BOLUS THEN 2400 MG/M2 INFUSION
     Route: 042
     Dates: start: 20071029, end: 20071030
  13. BEVACIZUMAB [Suspect]
     Route: 042
     Dates: start: 20071029, end: 20071029
  14. OXALIPLATIN [Suspect]
     Indication: RECTAL CANCER
     Route: 042
     Dates: start: 20071029, end: 20071029

REACTIONS (2)
  - BACK PAIN [None]
  - SYNCOPE [None]
